FAERS Safety Report 8433018-2 (Version None)
Quarter: 2012Q2

REPORT INFORMATION
  Report Type: 
  Country: None (occurrence: None)
  Receive Date: 20120613
  Receipt Date: 20120604
  Transmission Date: 20120825
  Serious: Yes (Other)
  Sender: FDA-Public Use
  Company Number: US-ABBOTT-12P-163-0942380-00

PATIENT
  Age: 42 Year
  Sex: Male

DRUGS (2)
  1. HUMIRA [Suspect]
     Indication: CROHN'S DISEASE
     Dates: start: 20080101
  2. TYSABRI [Suspect]
     Indication: PRODUCT USED FOR UNKNOWN INDICATION

REACTIONS (8)
  - SINUSITIS [None]
  - ANORECTAL DISORDER [None]
  - ANAL ABSCESS [None]
  - WEIGHT DECREASED [None]
  - DRUG INEFFECTIVE [None]
  - CROHN'S DISEASE [None]
  - INFECTION [None]
  - PROCTOCOLITIS [None]
